FAERS Safety Report 5391041-9 (Version None)
Quarter: 2007Q3

REPORT INFORMATION
  Report Type: 
  Country: None (occurrence: None)
  Receive Date: 20070719
  Receipt Date: 20070709
  Transmission Date: 20080115
  Serious: Yes (Other)
  Sender: FDA-Public Use
  Company Number: US-ELI_LILLY_AND_COMPANY-US200707002168

PATIENT
  Age: 65 Year
  Sex: Male

DRUGS (1)
  1. CIALIS [Suspect]
     Dosage: 20 MG, 2/W
     Dates: start: 20050101

REACTIONS (3)
  - EYE DISCHARGE [None]
  - LACRIMATION INCREASED [None]
  - VISION BLURRED [None]
